FAERS Safety Report 8872913 (Version 1)
Quarter: 2012Q4

REPORT INFORMATION
  Report Type: 
  Country: US (occurrence: US)
  Receive Date: 20121026
  Receipt Date: 20121026
  Transmission Date: 20130627
  Serious: No
  Sender: FDA-Public Use
  Company Number: US-AMGEN-USASP2012049996

PATIENT
  Sex: Female

DRUGS (7)
  1. ENBREL [Suspect]
     Indication: PRODUCT USED FOR UNKNOWN INDICATION
     Dosage: 50 mg, qwk
     Route: 058
  2. LANTUS [Concomitant]
     Dosage: UNK 100/ml
  3. NOVOLOG [Concomitant]
     Dosage: UNK 100/ml
  4. CARDIZEM                           /00489701/ [Concomitant]
     Dosage: 90 mg, UNK
  5. LISINOPRIL [Concomitant]
     Dosage: 40 mg, UNK
  6. AMBIEN [Concomitant]
     Dosage: 5 mg, UNK
  7. ALPRAZOLAM [Concomitant]
     Dosage: 0.5 mg, UNK

REACTIONS (1)
  - Malaise [Unknown]
